FAERS Safety Report 6660747-3 (Version None)
Quarter: 2010Q1

REPORT INFORMATION
  Report Type: 
  Country: None (occurrence: None)
  Receive Date: 20100331
  Receipt Date: 20100325
  Transmission Date: 20100710
  Serious: Yes (Death, Hospitalization)
  Sender: FDA-Public Use
  Company Number: JP-BAYER-200912636BYL

PATIENT
  Age: 54 Year
  Sex: Male
  Weight: 49 kg

DRUGS (13)
  1. NEXAVAR [Suspect]
     Indication: RENAL CELL CARCINOMA
     Dosage: TOTAL DAILY DOSE: 800 MG  UNIT DOSE: 200 MG
     Route: 048
     Dates: start: 20080916, end: 20081128
  2. NEXAVAR [Suspect]
     Dosage: TOTAL DAILY DOSE: 800 MG  UNIT DOSE: 200 MG
     Route: 048
     Dates: start: 20081204, end: 20081224
  3. NEXAVAR [Suspect]
     Dosage: UNIT DOSE: 200 MG
     Route: 048
     Dates: start: 20081224, end: 20090106
  4. NEXAVAR [Suspect]
     Dosage: UNIT DOSE: 200 MG
     Route: 048
     Dates: start: 20090303, end: 20090310
  5. NEXAVAR [Suspect]
     Dosage: TOTAL DAILY DOSE: 800 MG  UNIT DOSE: 200 MG
     Route: 048
     Dates: start: 20090107, end: 20090115
  6. NEXAVAR [Suspect]
     Dosage: UNIT DOSE: 200 MG
     Route: 048
     Dates: start: 20090116, end: 20090206
  7. NEXAVAR [Suspect]
     Dosage: TOTAL DAILY DOSE: 800 MG  UNIT DOSE: 200 MG
     Route: 048
     Dates: start: 20090207, end: 20090302
  8. FERROMIA [Concomitant]
     Route: 048
     Dates: start: 20080910, end: 20081112
  9. ASPIRIN [Concomitant]
     Indication: THROMBOSIS PROPHYLAXIS
     Dosage: UNIT DOSE: 100 MG
     Route: 048
     Dates: start: 20080914, end: 20090419
  10. LORCAM [Concomitant]
     Route: 048
     Dates: start: 20080914, end: 20090419
  11. MUCOSTA [Concomitant]
     Route: 048
     Dates: start: 20080925, end: 20090419
  12. LAC-B [Concomitant]
     Indication: CONSTIPATION
     Route: 048
     Dates: start: 20081114, end: 20090419
  13. EXACIN [Concomitant]
     Route: 042
     Dates: start: 20090303, end: 20090305

REACTIONS (6)
  - COUGH [None]
  - DYSPNOEA [None]
  - HYPERTENSION [None]
  - INTERSTITIAL LUNG DISEASE [None]
  - LIPASE INCREASED [None]
  - PALMAR-PLANTAR ERYTHRODYSAESTHESIA SYNDROME [None]
